FAERS Safety Report 9034723 (Version 1)
Quarter: 2013Q1

REPORT INFORMATION
  Report Type: Spontaneous
  Country: FR (occurrence: None)
  Receive Date: 20130118
  Receipt Date: 20130118
  Transmission Date: 20140127
  Serious: Yes (Life-Threatening, Hospitalization)
  Sender: FDA-Public Use
  Company Number: DSM-2013-00017

PATIENT
  Age: 87 Year
  Sex: Female

DRUGS (14)
  1. OLMETEC [Suspect]
     Indication: HYPERTENSION
     Route: 048
     Dates: end: 201207
  2. DIFFU K(POTASSIUM CHLORIDE)(POTASSIUM CHLORIDE) [Concomitant]
  3. IDEOS(COLECALCIFEROL, CALCIUM CARBONATE)(CHEWABLE TABLET)(COLECALCIFEROL, CALCIUM CARBONATE) [Concomitant]
  4. INEXIUM(ESOMEPRAZOLE SODIUM)(40 MILLIGRAM, GASTRO-RESISTANT TABLET)(ESOMEPRAZOLE SODIUM) [Concomitant]
  5. MEDIATENSYL(URAPIDIL)(30 MILLIGRAM, CAPSULE)(URAPIDIL) [Concomitant]
  6. VERAPAMIL HYDROCHLORIDE(VERAPAMIL HYDROCHLORIDE)(VERAPAMIL HYDROCHLORIDE) [Concomitant]
  7. XALACOM(TIMOLOL MALEATE, LATANOPROST)(TIMOLOL MALEATE, LATANOPROST) [Concomitant]
  8. KARDEGIC(ACETYLSALICYLATE LYSINE)(75 MILLIGRAM, ORAL POWDER)(ACETYLSALICYLATE LYSINE) [Concomitant]
  9. ALLOPURINOL(ALLOPURINOL)(ALLOPURINOL) [Concomitant]
  10. TANAKAN(GINKGO BILOBA)(40 MILLIGRAM, COATED TABLET)(GINKGO BILBOA) [Concomitant]
  11. DOLIPRANE(PARACETAMOL) (PARACETAMOL) [Concomitant]
  12. XYZALL(LEVOCETIRIZINE)(LEVOCETIRIZINE) [Concomitant]
  13. IMOVANE(ZOPICLONE)(ZOPICLONE) [Concomitant]
  14. SIMVASTATIN(SIMVASTATIN)(SIMVASTATIN) [Concomitant]

REACTIONS (5)
  - Diarrhoea [None]
  - Dehydration [None]
  - Intestinal mucosal atrophy [None]
  - Metabolic acidosis [None]
  - Endoscopy upper gastrointestinal tract abnormal [None]
